FAERS Safety Report 9248189 (Version 1)
Quarter: 2013Q1

REPORT INFORMATION
  Report Type: Spontaneous
  Country: US (occurrence: None)
  Receive Date: 20130305
  Receipt Date: 20130305
  Transmission Date: 20140127
  Serious: Yes (Hospitalization)
  Sender: FDA-Public Use
  Company Number: 163-21880-12060659

PATIENT
  Age: 66 Year
  Sex: Female

DRUGS (10)
  1. REVLIMID [Suspect]
     Indication: PLASMA CELL MYELOMA
     Dosage: 5 MG, 21, PO TEMP
     Route: 048
     Dates: start: 20120410
  2. PHOSPLO (CALCIUM ACETATE) [Concomitant]
  3. WARFARIN SODIUM (WARFARIN SODIUM) [Concomitant]
  4. TAMOXIFEN CITRATE (TAMOXIFEN CITRATE) [Concomitant]
  5. RENAL (NEPHROVITE) [Concomitant]
  6. MULTIVITAMIN/ZINC (MULTIVITAMINS) [Concomitant]
  7. TYLENOL WITH CODEINE #3 (PANADEINE CO) [Concomitant]
  8. EPOGEN (EPOETIN ALFA) [Concomitant]
  9. ACETAMINOPHEN W/CODEINE (GALENIC/PARACETAMOL/CODEINE/) [Concomitant]
  10. ICY HOT EXTRA STRENGTH (METHYL SALICYLATE) [Concomitant]

REACTIONS (2)
  - Myocardial infarction [None]
  - Urinary tract infection [None]
